FAERS Safety Report 20317529 (Version 1)
Quarter: 2022Q1

REPORT INFORMATION
  Report Type: Spontaneous
  Country: TH (occurrence: None)
  Receive Date: 20220110
  Receipt Date: 20220110
  Transmission Date: 20220423
  Serious: Yes (Other)
  Sender: FDA-Public Use
  Company Number: TH-ADIENNEP-2022AD000013

PATIENT
  Age: 31 Year
  Sex: Male
  Weight: 135 kg

DRUGS (5)
  1. THIOTEPA [Suspect]
     Active Substance: THIOTEPA
     Indication: Allogenic stem cell transplantation
  2. FLUDARABINE [Suspect]
     Active Substance: FLUDARABINE PHOSPHATE
     Indication: Allogenic stem cell transplantation
  3. CYCLOPHOSPHAMIDE [Suspect]
     Active Substance: CYCLOPHOSPHAMIDE
     Indication: Allogenic stem cell transplantation
  4. METHOTREXATE [Suspect]
     Active Substance: METHOTREXATE
     Indication: Prophylaxis against graft versus host disease
  5. TACROLIMUS [Suspect]
     Active Substance: TACROLIMUS
     Indication: Prophylaxis against graft versus host disease

REACTIONS (5)
  - Acute graft versus host disease in skin [Recovered/Resolved]
  - Cytomegalovirus colitis [Recovered/Resolved]
  - Cytomegalovirus enteritis [Recovered/Resolved]
  - Hyperbilirubinaemia [Recovered/Resolved]
  - Guillain-Barre syndrome [Recovered/Resolved]
